FAERS Safety Report 8814107 (Version 1)
Quarter: 2012Q4

REPORT INFORMATION
  Report Type: Spontaneous
  Country: US (occurrence: None)
  Receive Date: 20120926
  Receipt Date: 20120926
  Transmission Date: 20130627
  Serious: Yes (Other)
  Sender: FDA-Public Use
  Company Number: None

PATIENT
  Sex: Female
  Weight: 61.24 kg

DRUGS (1)
  1. QUETIAPINE [Suspect]
     Indication: BIPOLAR DISORDER
     Dosage: 1/2 - 1 tablet nightly mouth
     Route: 048
     Dates: start: 201205, end: 201206

REACTIONS (7)
  - Product substitution issue [None]
  - Anger [None]
  - Agitation [None]
  - Impatience [None]
  - Abnormal behaviour [None]
  - Imprisonment [None]
  - Drug dose omission [None]
